FAERS Safety Report 7091337-9 (Version None)
Quarter: 2010Q4

REPORT INFORMATION
  Report Type: 
  Country: None (occurrence: None)
  Receive Date: 20101109
  Receipt Date: 20101104
  Transmission Date: 20110411
  Serious: Yes (Hospitalization)
  Sender: FDA-Public Use
  Company Number: A0774944A

PATIENT
  Age: 66 Year
  Sex: Female
  Weight: 83.2 kg

DRUGS (8)
  1. AVANDIA [Suspect]
     Indication: DIABETES MELLITUS
     Dosage: 8MG PER DAY
     Route: 048
     Dates: start: 20060301, end: 20070101
  2. AVANDAMET [Suspect]
     Indication: DIABETES MELLITUS
     Route: 048
     Dates: start: 20040601, end: 20041201
  3. LOPRESSOR [Concomitant]
  4. HYDROCHLOROTHIAZIDE [Concomitant]
  5. PLENDIL [Concomitant]
  6. GLYBURIDE [Concomitant]
  7. PREMARIN [Concomitant]
  8. PRILOSEC [Concomitant]

REACTIONS (2)
  - CORONARY ARTERY DISEASE [None]
  - MYOCARDIAL INFARCTION [None]
